FAERS Safety Report 12231669 (Version 1)
Quarter: 2016Q2

REPORT INFORMATION
  Report Type: Spontaneous
  Country: US (occurrence: US)
  Receive Date: 20160401
  Receipt Date: 20160401
  Transmission Date: 20160815
  Serious: Yes (Hospitalization)
  Sender: FDA-Public Use
  Company Number: US-PFIZER INC-2016186360

PATIENT
  Age: 15 Year
  Sex: Female
  Weight: 52 kg

DRUGS (3)
  1. PRISTIQ EXTENDED-RELEASE [Suspect]
     Active Substance: DESVENLAFAXINE SUCCINATE
     Indication: ANXIETY
     Dosage: 50 MG, 1X/DAY
     Route: 048
     Dates: start: 201602, end: 201603
  2. PRISTIQ EXTENDED-RELEASE [Suspect]
     Active Substance: DESVENLAFAXINE SUCCINATE
     Indication: DEPRESSION SUICIDAL
     Dosage: 25 MG, 1X/DAY
     Route: 048
     Dates: start: 20160209, end: 201602
  3. PRISTIQ EXTENDED-RELEASE [Suspect]
     Active Substance: DESVENLAFAXINE SUCCINATE
     Dosage: 75 MG (TWO PILLS 50MG AND 25MG), 1X/DAY, IN THE MORNING
     Route: 048
     Dates: start: 201603

REACTIONS (4)
  - Pre-existing condition improved [Unknown]
  - Panic attack [Recovering/Resolving]
  - Therapeutic response unexpected [Unknown]
  - Product use issue [Unknown]

NARRATIVE: CASE EVENT DATE: 201602
